FAERS Safety Report 19562625 (Version 2)
Quarter: 2021Q3

REPORT INFORMATION
  Report Type: Spontaneous
  Country: FR (occurrence: FR)
  Receive Date: 20210715
  Receipt Date: 20210720
  Transmission Date: 20211014
  Serious: Yes (Hospitalization, Other)
  Sender: FDA-Public Use
  Company Number: FR-INDIVIOR US-INDV-130278-2021

PATIENT

DRUGS (2)
  1. NICOTINE. [Suspect]
     Active Substance: NICOTINE
     Indication: PRODUCT USED FOR UNKNOWN INDICATION
     Dosage: 16 PA
     Route: 055
  2. BUPRENORPHINE. [Suspect]
     Active Substance: BUPRENORPHINE
     Indication: PRODUCT USED FOR UNKNOWN INDICATION
     Dosage: 12 MILLIGRAM, QD
     Route: 042
     Dates: start: 2018

REACTIONS (17)
  - Coagulopathy [Recovering/Resolving]
  - Hypoalbuminaemia [Recovering/Resolving]
  - Staphylococcal bacteraemia [Recovering/Resolving]
  - Intentional product use issue [Unknown]
  - Hypovitaminosis [Recovering/Resolving]
  - Thrombocytopenia [Recovering/Resolving]
  - Abscess limb [Recovering/Resolving]
  - Hypotension [Unknown]
  - Mitral valve incompetence [Recovering/Resolving]
  - Malnutrition [Recovering/Resolving]
  - Drug abuse [Not Recovered/Not Resolved]
  - Generalised oedema [Recovering/Resolving]
  - Lactic acidosis [Recovering/Resolving]
  - Anaemia folate deficiency [Recovering/Resolving]
  - Cardiomyopathy [Not Recovered/Not Resolved]
  - Lung disorder [Recovering/Resolving]
  - Cell death [Recovering/Resolving]

NARRATIVE: CASE EVENT DATE: 2018
